FAERS Safety Report 6756064-3 (Version None)
Quarter: 2010Q2

REPORT INFORMATION
  Report Type: 
  Country: None (occurrence: None)
  Receive Date: 20100604
  Receipt Date: 20100524
  Transmission Date: 20101027
  Serious: Yes (Death, Hospitalization)
  Sender: FDA-Public Use
  Company Number: US-GENENTECH-302396

PATIENT
  Age: 54 Year
  Sex: Male

DRUGS (6)
  1. RITUXAN [Suspect]
     Indication: CHRONIC LYMPHOCYTIC LEUKAEMIA
     Dosage: UNK
     Route: 065
  2. FLUDARABINE [Suspect]
     Indication: CHRONIC LYMPHOCYTIC LEUKAEMIA
     Dosage: UNK
     Route: 065
  3. CYTOXAN [Suspect]
     Indication: CHRONIC LYMPHOCYTIC LEUKAEMIA
     Dosage: UNK
     Route: 065
  4. ENTECAVIR [Suspect]
     Indication: HEPATITIS B
     Dosage: UNK
     Route: 048
  5. ADEFOVIR DIPIVOXIL KIT [Suspect]
     Indication: HEPATITIS B
     Dosage: UNK
     Route: 048
  6. PREDNISONE [Suspect]
     Indication: HEPATITIS B
     Dosage: UNK
     Route: 048

REACTIONS (4)
  - CHOLESTASIS [None]
  - HEPATIC CIRRHOSIS [None]
  - HEPATITIS B [None]
  - LACTIC ACIDOSIS [None]
